FAERS Safety Report 20197449 (Version 1)
Quarter: 2021Q4

REPORT INFORMATION
  Report Type: Spontaneous
  Country: JP (occurrence: JP)
  Receive Date: 20211217
  Receipt Date: 20211217
  Transmission Date: 20220303
  Serious: No
  Sender: FDA-Public Use
  Company Number: JP-PACIRA-2020000562

PATIENT

DRUGS (2)
  1. EXPAREL [Suspect]
     Active Substance: BUPIVACAINE
     Dosage: DILUTED 10 CC OF EXPAREL WITH 10 CC OF BUPIVACAINE
     Route: 050
  2. BUPIVACAINE [Suspect]
     Active Substance: BUPIVACAINE
     Dosage: DILUTED 10 CC OF EXPAREL WITH 10 CC OF BUPIVACAINE

REACTIONS (1)
  - Injection site bruising [Unknown]
